FAERS Safety Report 10388924 (Version 1)
Quarter: 2014Q1

REPORT INFORMATION
  Report Type: Spontaneous
  Country: US (occurrence: None)
  Receive Date: 20140306
  Receipt Date: 20140306
  Transmission Date: 20141002
  Serious: Yes (Hospitalization)
  Sender: FDA-Public Use
  Company Number: 163-21880-13114915

PATIENT
  Age: 48 Year
  Sex: Male
  Weight: 84.8 kg

DRUGS (6)
  1. REVLIMID (LENALIDOMIDE)(25 MILLIGRAM, CAPSULES) [Suspect]
     Indication: PLASMA CELL MYELOMA
     Dosage: 14 IN 21 D, PO
     Route: 048
     Dates: start: 20131028, end: 20131117
  2. ACYCLOVIR(ACICLOVIR)(UNKNOWN) [Concomitant]
  3. BACTRIM(BACTRIM)(UNKNOWN)? [Concomitant]
  4. COUMADIN(WARFARIN SODIUM)(UNKNOWN) [Concomitant]
  5. CALCIUM(CALCIUM)(UNKNOWN) [Concomitant]
  6. DEXAMETHASONE(DEXAMETHASONE)(TABLETS) [Concomitant]

REACTIONS (2)
  - Pyrexia [None]
  - Dehydration [None]
